FAERS Safety Report 6807508-X (Version None)
Quarter: 2010Q2

REPORT INFORMATION
  Report Type: 
  Country: None (occurrence: None)
  Receive Date: 20100629
  Receipt Date: 20081024
  Transmission Date: 20101027
  Serious: No
  Sender: FDA-Public Use
  Company Number: US-PFIZER INC-2008090956

PATIENT
  Sex: Female
  Weight: 61.23 kg

DRUGS (6)
  1. LONITEN [Suspect]
     Indication: HYPERTENSION
     Dates: start: 20080825, end: 20081009
  2. LOVASTATIN [Concomitant]
  3. LABETALOL HCL [Concomitant]
  4. OMEPRAZOLE [Concomitant]
  5. CATAPRES [Concomitant]
  6. PROCRIT [Concomitant]

REACTIONS (9)
  - ANAEMIA [None]
  - CHILLS [None]
  - DRY SKIN [None]
  - DYSGEUSIA [None]
  - HIRSUTISM [None]
  - MUSCULAR WEAKNESS [None]
  - PRURITUS [None]
  - RASH [None]
  - SWELLING [None]
